FAERS Safety Report 11451787 (Version 1)
Quarter: 2015Q3

REPORT INFORMATION
  Report Type: Spontaneous
  Country: US (occurrence: None)
  Receive Date: 20150902
  Receipt Date: 20150902
  Transmission Date: 20151125
  Serious: Yes (Hospitalization, Disabling)
  Sender: FDA-Public Use
  Company Number: None

PATIENT
  Age: 48 Year
  Sex: Female
  Weight: 83.92 kg

DRUGS (14)
  1. HYDROCHLOROTHIAZIDE. [Concomitant]
     Active Substance: HYDROCHLOROTHIAZIDE
  2. PANTOPRAZOLE [Concomitant]
     Active Substance: PANTOPRAZOLE SODIUM
  3. PROZAC [Concomitant]
     Active Substance: FLUOXETINE HYDROCHLORIDE
  4. ASPIRIN. [Concomitant]
     Active Substance: ASPIRIN
  5. DIAZEPAM. [Concomitant]
     Active Substance: DIAZEPAM
  6. ATENOLOL. [Concomitant]
     Active Substance: ATENOLOL
  7. LISINOPRIL. [Concomitant]
     Active Substance: LISINOPRIL
  8. ARIPIPRAZOLE. [Concomitant]
     Active Substance: ARIPIPRAZOLE
  9. SIMVASTATIN. [Suspect]
     Active Substance: SIMVASTATIN
     Indication: BLOOD CHOLESTEROL INCREASED
     Dosage: TAKEN BY MOUTH
     Dates: start: 20140101, end: 20140823
  10. CARDURAL [Concomitant]
  11. DOCUSATE [Concomitant]
     Active Substance: DOCUSATE
  12. HYDROCODON-ACETAMONOPHEN [Concomitant]
  13. TRAZODONE [Concomitant]
     Active Substance: TRAZODONE HYDROCHLORIDE
  14. MULTIVITAMIN [Concomitant]
     Active Substance: VITAMINS

REACTIONS (3)
  - Muscle spasms [None]
  - Musculoskeletal stiffness [None]
  - Myocardial infarction [None]

NARRATIVE: CASE EVENT DATE: 20150823
